FAERS Safety Report 20596127 (Version 4)
Quarter: 2022Q2

REPORT INFORMATION
  Report Type: Spontaneous
  Country: US (occurrence: US)
  Receive Date: 20220315
  Receipt Date: 20220502
  Transmission Date: 20220720
  Serious: Yes (Death, Hospitalization, Other)
  Sender: FDA-Public Use
  Company Number: US-ELI_LILLY_AND_COMPANY-US202203003531

PATIENT
  Age: 66 Year
  Sex: Male

DRUGS (16)
  1. GEMCITABINE HYDROCHLORIDE [Suspect]
     Active Substance: GEMCITABINE HYDROCHLORIDE
     Indication: Product used for unknown indication
     Dosage: 1000 MG/M2, OTHER (ON DAYS 1, 8, AND 15 OF EACH 28-DAY CYCLE)
     Route: 042
     Dates: start: 20211229, end: 20220302
  2. ZYPREXA [Suspect]
     Active Substance: OLANZAPINE
     Indication: Nausea
     Dosage: 5 MG, EACH EVENING
     Route: 048
  3. ZYPREXA [Suspect]
     Active Substance: OLANZAPINE
     Indication: Nausea
     Dosage: 7.5 MG, EACH EVENING
     Route: 048
  4. ZYPREXA [Suspect]
     Active Substance: OLANZAPINE
     Indication: Nausea
     Dosage: 10 MG, EACH EVENING
     Route: 048
  5. EMLA [Concomitant]
     Active Substance: LIDOCAINE\PRILOCAINE
     Indication: Product used for unknown indication
     Dosage: UNK, PRN
  6. DILAUDID [Concomitant]
     Active Substance: HYDROMORPHONE HYDROCHLORIDE
     Indication: Pain
     Dosage: 4 MG TO 6 MG, EVERY 4 HRS
     Route: 048
  7. TYLENOL [Concomitant]
     Active Substance: ACETAMINOPHEN
     Indication: Pain
     Dosage: 500 MG TO 1000 MG, EVERY 6 HRS AS NEEDED
     Route: 048
  8. VASCEPA [Concomitant]
     Active Substance: ICOSAPENT ETHYL
     Indication: Product used for unknown indication
     Dosage: 1 G, BID
     Route: 048
  9. ASPIRIN [Concomitant]
     Active Substance: ASPIRIN
     Indication: Product used for unknown indication
     Dosage: 81 MG, DAILY
     Route: 048
  10. DICLOFENAC [Concomitant]
     Active Substance: DICLOFENAC
     Indication: Arthralgia
     Dosage: 2 TO 4 GRAMS, PRN
  11. TUMS [Concomitant]
     Active Substance: CALCIUM CARBONATE
     Indication: Gastrooesophageal reflux disease
     Dosage: 2000 MG TO 3000 MG, PRN
  12. EXALGO [Concomitant]
     Active Substance: HYDROMORPHONE HYDROCHLORIDE
     Indication: Product used for unknown indication
     Dosage: 16 MG, DAILY (EVERY 24 HOURS)
  13. MOVANTIK [Concomitant]
     Active Substance: NALOXEGOL OXALATE
     Indication: Product used for unknown indication
     Dosage: 12.5 MG, DAILY
     Route: 048
  14. LIORESAL [Concomitant]
     Active Substance: BACLOFEN
     Indication: Hiccups
     Dosage: 10 MG, EVERY 8 HRS
     Route: 048
  15. ZOFRAN [Concomitant]
     Active Substance: ONDANSETRON HYDROCHLORIDE
     Indication: Nausea
     Dosage: 8 MG, EVERY 8 HRS
     Route: 048
  16. ATIVAN [Concomitant]
     Active Substance: LORAZEPAM
     Indication: Nausea
     Dosage: 0.5 MG, TID
     Route: 048

REACTIONS (3)
  - Malignant neoplasm progression [Fatal]
  - Deep vein thrombosis [Not Recovered/Not Resolved]
  - Off label use [Unknown]

NARRATIVE: CASE EVENT DATE: 20220214
